FAERS Safety Report 14653888 (Version 12)
Quarter: 2020Q1

REPORT INFORMATION
  Report Type: Spontaneous
  Country: US (occurrence: US)
  Receive Date: 20180319
  Receipt Date: 20200127
  Transmission Date: 20200409
  Serious: Yes (Other)
  Sender: FDA-Public Use
  Company Number: US-PFIZER INC-2018113723

PATIENT
  Age: 55 Year
  Sex: Female
  Weight: 59 kg

DRUGS (7)
  1. VALTREX [Concomitant]
     Active Substance: VALACYCLOVIR HYDROCHLORIDE
     Dosage: 1 G, DAILY
     Route: 048
  2. DOXYCYCLINE. [Concomitant]
     Active Substance: DOXYCYCLINE
     Dosage: 100 MG, UNK
     Route: 048
     Dates: start: 2015
  3. LYRICA [Suspect]
     Active Substance: PREGABALIN
     Indication: FIBROMYALGIA
     Dosage: UNK
  4. LYRICA [Suspect]
     Active Substance: PREGABALIN
     Indication: POST HERPETIC NEURALGIA
     Dosage: 100 MG, 3X/DAY
     Route: 048
     Dates: start: 2003
  5. LYRICA [Suspect]
     Active Substance: PREGABALIN
     Indication: TRIGEMINAL NEURALGIA
     Dosage: 100 MG, 3X/DAY (TAKE 1 CAPSULE BY MOUTH 3 TIMES A DAY)
     Route: 048
     Dates: start: 20190102
  6. LYRICA [Suspect]
     Active Substance: PREGABALIN
     Indication: NEUROPATHY PERIPHERAL
  7. DOXYCYCLINE. [Concomitant]
     Active Substance: DOXYCYCLINE
     Dosage: 100 MG, DAILY
     Route: 048

REACTIONS (20)
  - Dizziness [Unknown]
  - Malaise [Unknown]
  - Stress [Unknown]
  - Abdominal pain upper [Unknown]
  - Loss of consciousness [Unknown]
  - Immunodeficiency [Unknown]
  - Feeling abnormal [Unknown]
  - Concussion [Recovering/Resolving]
  - Influenza [Unknown]
  - Bronchitis [Unknown]
  - Sinusitis [Unknown]
  - Cerebrovascular accident [Unknown]
  - Therapeutic response unexpected [Unknown]
  - Anaemia [Unknown]
  - Pain [Unknown]
  - Headache [Unknown]
  - Head injury [Unknown]
  - Pre-existing condition improved [Unknown]
  - Eczema [Unknown]
  - Tooth fracture [Recovering/Resolving]

NARRATIVE: CASE EVENT DATE: 20190414
